FAERS Safety Report 6157461-X (Version None)
Quarter: 2009Q2

REPORT INFORMATION
  Report Type: 
  Country: None (occurrence: None)
  Receive Date: 20090414
  Receipt Date: 20090331
  Transmission Date: 20091009
  Serious: Yes (Hospitalization)
  Sender: FDA-Public Use
  Company Number: 2008001138

PATIENT
  Age: 69 Year
  Sex: Male
  Weight: 75.4 kg

DRUGS (9)
  1. ERLOTINIB (ERLOTINIB) (TABLET) (ERLOTINIB) [Suspect]
     Indication: GLIOBLASTOMA MULTIFORME
     Dosage: (150 MILLICURIES, QD), ORAL
     Route: 048
     Dates: start: 20080314
  2. RAPAMUNE [Suspect]
     Indication: GLIOBLASTOMA MULTIFORME
     Dosage: (5 MG, QD), ORAL
     Route: 048
  3. LOTREL [Concomitant]
  4. ARICEPT [Concomitant]
  5. ISOSORBIDE (ISOSORBIDE) [Concomitant]
  6. ASPIRIN [Concomitant]
  7. ATENOLOL [Concomitant]
  8. DEXAMETHASONE TAB [Concomitant]
  9. DEPAKOTE [Concomitant]

REACTIONS (7)
  - COLITIS [None]
  - CONVULSION [None]
  - DEEP VEIN THROMBOSIS [None]
  - DIVERTICULITIS [None]
  - MUSCULAR WEAKNESS [None]
  - THERAPEUTIC RESPONSE DECREASED [None]
  - THROMBOCYTOPENIA [None]
